FAERS Safety Report 6065239-0 (Version None)
Quarter: 2009Q1

REPORT INFORMATION
  Report Type: 
  Country: None (occurrence: None)
  Receive Date: 20090204
  Receipt Date: 20090128
  Transmission Date: 20090719
  Serious: Yes (Other)
  Sender: FDA-Public Use
  Company Number: PHHY2009CA03081

PATIENT
  Sex: Female

DRUGS (5)
  1. ACLASTA [Suspect]
     Indication: OSTEOPOROSIS
     Dosage: UNK
     Route: 042
     Dates: start: 20081202
  2. ELTROXIN ^GLAXO^ [Concomitant]
     Dosage: 0.1 MG, QD
  3. LITHIUM CARBONATE [Concomitant]
     Dosage: 300 MG AM, 450 MG PM
  4. RESTORIL [Concomitant]
     Dosage: 30 MG HS
  5. CELEXA [Concomitant]
     Dosage: 20 MG, QD

REACTIONS (7)
  - BACK PAIN [None]
  - COUGH [None]
  - GAIT DISTURBANCE [None]
  - MYALGIA [None]
  - PAIN IN EXTREMITY [None]
  - PHYSIOTHERAPY [None]
  - TENDON PAIN [None]
